FAERS Safety Report 4281749-0 (Version None)
Quarter: 2004Q1

REPORT INFORMATION
  Report Type: 
  Country: None (occurrence: None)
  Receive Date: 20040108
  Receipt Date: 20030806
  Transmission Date: 20041129
  Serious: Yes (Other)
  Sender: FDA-Public Use
  Company Number: HQWYE968608AUG03

PATIENT
  Sex: Female

DRUGS (1)
  1. PREMPRO [Suspect]
     Dosage: UNSPECIFIED DOSAGE, ORAL
     Route: 048
     Dates: start: 19971101, end: 20000801

REACTIONS (2)
  - BREAST CANCER [None]
  - PULMONARY EMBOLISM [None]
